FAERS Safety Report 12530280 (Version 1)
Quarter: 2016Q3

REPORT INFORMATION
  Report Type: Spontaneous
  Country: US (occurrence: US)
  Receive Date: 20160706
  Receipt Date: 20160706
  Transmission Date: 20161109
  Serious: No
  Sender: FDA-Public Use
  Company Number: US-PFIZER INC-2016293940

PATIENT
  Age: 54 Year

DRUGS (2)
  1. SKELAXIN [Suspect]
     Active Substance: METAXALONE
  2. LEVAQUIN [Suspect]
     Active Substance: LEVOFLOXACIN

REACTIONS (1)
  - Drug hypersensitivity [Unknown]
